FAERS Safety Report 11119323 (Version 2)
Quarter: 2015Q2

REPORT INFORMATION
  Report Type: Spontaneous
  Country: AU (occurrence: AU)
  Receive Date: 20150518
  Receipt Date: 20150608
  Transmission Date: 20150821
  Serious: Yes (Other)
  Sender: FDA-Public Use
  Company Number: AU-PFIZER INC-2015156870

PATIENT
  Sex: Female

DRUGS (6)
  1. LYRICA [Suspect]
     Active Substance: PREGABALIN
     Indication: PAIN
     Dosage: 25MG/DAY FOR 2 WEEKS THEN TO INCREASE TO 50MG/DAY
     Route: 048
  2. LYRICA [Suspect]
     Active Substance: PREGABALIN
     Indication: FIBROMYALGIA
     Dosage: 50 MG, UNK
     Route: 048
  3. LYRICA [Suspect]
     Active Substance: PREGABALIN
     Indication: ARTHRALGIA
     Dosage: 25 MG, 2X/DAY
  4. PANADOL /00020001/ [Concomitant]
     Indication: PAIN
  5. PANADEINE FORTE [Concomitant]
     Active Substance: ACETAMINOPHEN\CODEINE PHOSPHATE
     Indication: PAIN
  6. LYRICA [Suspect]
     Active Substance: PREGABALIN
     Indication: AUTOIMMUNE DISORDER

REACTIONS (7)
  - Apathy [Unknown]
  - Activities of daily living impaired [Unknown]
  - Sedation [Unknown]
  - Feeling abnormal [Unknown]
  - Sjogren^s syndrome [Unknown]
  - Arthralgia [Unknown]
  - Headache [Unknown]
